FAERS Safety Report 6176141-8 (Version None)
Quarter: 2009Q2

REPORT INFORMATION
  Report Type: 
  Country: None (occurrence: None)
  Receive Date: 20090501
  Receipt Date: 20090422
  Transmission Date: 20091009
  Serious: Yes (Other)
  Sender: FDA-Public Use
  Company Number: US-JNJFOC-20090404946

PATIENT
  Sex: Female
  Weight: 60.33 kg

DRUGS (4)
  1. REMICADE [Suspect]
     Route: 042
  2. REMICADE [Suspect]
     Route: 042
  3. REMICADE [Suspect]
     Indication: RHEUMATOID ARTHRITIS
     Dosage: DOSAGE REPORTED AS 2
     Route: 042
  4. EAR DROPS [Suspect]
     Indication: EAR PAIN

REACTIONS (4)
  - ARTHRALGIA [None]
  - DEAFNESS [None]
  - EAR PAIN [None]
  - OROPHARYNGEAL PAIN [None]
